FAERS Safety Report 8443504-7 (Version None)
Quarter: 2012Q2

REPORT INFORMATION
  Report Type: 
  Country: None (occurrence: None)
  Receive Date: 20120618
  Receipt Date: 20120607
  Transmission Date: 20120825
  Serious: Yes (Other)
  Sender: FDA-Public Use
  Company Number: JP-JNJFOC-20120600663

PATIENT
  Sex: Male
  Weight: 49 kg

DRUGS (20)
  1. REMICADE [Suspect]
     Route: 042
     Dates: start: 20110120
  2. REMICADE [Suspect]
     Route: 042
     Dates: start: 20110802
  3. REMICADE [Suspect]
     Route: 042
     Dates: start: 20110830
  4. REMICADE [Suspect]
     Route: 042
     Dates: start: 20111122
  5. REMICADE [Suspect]
     Route: 042
     Dates: start: 20100903
  6. PROGRAF [Concomitant]
     Indication: RHEUMATOID ARTHRITIS
     Route: 048
     Dates: start: 20111025, end: 20120423
  7. REMICADE [Suspect]
     Route: 042
     Dates: start: 20110512
  8. METHOTREXATE [Suspect]
     Route: 048
     Dates: start: 20091005
  9. REMICADE [Suspect]
     Route: 042
     Dates: start: 20110317
  10. ISONIAZID [Concomitant]
     Indication: ANTIBIOTIC PROPHYLAXIS
     Route: 048
     Dates: start: 20100601, end: 20110101
  11. REMICADE [Suspect]
     Indication: RHEUMATOID ARTHRITIS
     Route: 042
     Dates: start: 20110927
  12. REMICADE [Suspect]
     Route: 042
     Dates: start: 20100820
  13. METHOTREXATE [Suspect]
     Indication: RHEUMATOID ARTHRITIS
     Route: 048
     Dates: start: 20110830
  14. METHOTREXATE [Suspect]
     Route: 048
     Dates: end: 20120214
  15. REMICADE [Suspect]
     Route: 042
     Dates: start: 20110705
  16. REMICADE [Suspect]
     Dosage: 14TH INFUSION
     Route: 042
     Dates: start: 20120312
  17. LEVOFLOXACIN [Concomitant]
     Dosage: DOSE: 500 DF
     Route: 048
     Dates: start: 20120418
  18. REMICADE [Suspect]
     Route: 042
     Dates: start: 20101125
  19. REMICADE [Suspect]
     Route: 042
     Dates: start: 20120117
  20. REMICADE [Suspect]
     Route: 042
     Dates: start: 20101001

REACTIONS (2)
  - NASOPHARYNGITIS [None]
  - TUBERCULOSIS [None]
